FAERS Safety Report 8241000-3 (Version None)
Quarter: 2012Q1

REPORT INFORMATION
  Report Type: 
  Country: None (occurrence: None)
  Receive Date: 20120328
  Receipt Date: 20120314
  Transmission Date: 20120608
  Serious: Yes (Other)
  Sender: FDA-Public Use
  Company Number: US-MYLANLABS-2012S1006136

PATIENT
  Age: 42 Year
  Sex: Male

DRUGS (1)
  1. ZOLPIDEM [Suspect]
     Dosage: TOOK USUAL 10MG DOSE AT 11PM
     Route: 048

REACTIONS (6)
  - HYPERHIDROSIS [None]
  - AMNESIA [None]
  - ROAD TRAFFIC ACCIDENT [None]
  - SOMNAMBULISM [None]
  - FEELING DRUNK [None]
  - AGITATION [None]
